FAERS Safety Report 9447938 (Version 3)
Quarter: 2013Q4

REPORT INFORMATION
  Report Type: Spontaneous
  Country: BR (occurrence: BR)
  Receive Date: 20130808
  Receipt Date: 20131021
  Transmission Date: 20140711
  Serious: Yes (Other)
  Sender: FDA-Public Use
  Company Number: PHHY2013BR085009

PATIENT
  Sex: Male
  Weight: 48.5 kg

DRUGS (3)
  1. RITALINA [Suspect]
     Dosage: 2 DF, DAILY
     Route: 048
  2. SERTRALINE [Concomitant]
     Dosage: 1 DF, QD
  3. RISPERIDONE [Concomitant]
     Dosage: 1 DF, (HALF TABLET IN THE MORNING AND AT NIGHT)

REACTIONS (1)
  - Psychotic disorder [Recovering/Resolving]
